FAERS Safety Report 5639482-6 (Version None)
Quarter: 2008Q1

REPORT INFORMATION
  Report Type: 
  Country: None (occurrence: None)
  Receive Date: 20080226
  Receipt Date: 20080215
  Transmission Date: 20080703
  Serious: Yes (Other)
  Sender: FDA-Public Use
  Company Number: AU-PFIZER INC-2008015334

PATIENT
  Age: 55 Year
  Sex: Female

DRUGS (2)
  1. ZELDOX (CAPSULES) [Suspect]
     Indication: SCHIZOAFFECTIVE DISORDER
     Route: 048
  2. ZUCLOPENTHIXOL [Suspect]
     Indication: SCHIZOAFFECTIVE DISORDER
     Dosage: TEXT:400MG WEEKLY

REACTIONS (1)
  - NICOTINE DEPENDENCE [None]
